FAERS Safety Report 5068736-X (Version None)
Quarter: 2006Q3

REPORT INFORMATION
  Report Type: 
  Country: None (occurrence: None)
  Receive Date: 20060802
  Receipt Date: 20060308
  Transmission Date: 20061208
  Serious: No
  Sender: FDA-Public Use
  Company Number: US-BRISTOL-MYERS SQUIBB COMPANY-13307749

PATIENT
  Age: 81 Year
  Sex: Female
  Weight: 73 kg

DRUGS (2)
  1. COUMADIN [Suspect]
     Indication: ATRIAL FIBRILLATION
  2. CRESTOR [Concomitant]

REACTIONS (2)
  - DRUG INEFFECTIVE [None]
  - INTERNATIONAL NORMALISED RATIO DECREASED [None]
